FAERS Safety Report 18797992 (Version 2)
Quarter: 2021Q1

REPORT INFORMATION
  Report Type: Report from Study
  Country: NL (occurrence: NL)
  Receive Date: 20210128
  Receipt Date: 20210211
  Transmission Date: 20210419
  Serious: Yes (Death, Life-Threatening, Hospitalization, Other)
  Sender: FDA-Public Use
  Company Number: NVSC2021NL014256

PATIENT
  Age: 58 Year
  Sex: Female
  Weight: 56 kg

DRUGS (1)
  1. BYL719 [Suspect]
     Active Substance: ALPELISIB
     Indication: METASTATIC NEOPLASM
     Dosage: 300 MG
     Route: 048
     Dates: start: 20201218, end: 20210114

REACTIONS (10)
  - Intestinal perforation [Fatal]
  - Diarrhoea [Unknown]
  - Abdominal pain upper [Unknown]
  - Mucosal inflammation [Fatal]
  - Metastases to liver [Unknown]
  - Vomiting [Unknown]
  - Pneumothorax [Unknown]
  - Abdominal pain [Unknown]
  - Pain [Unknown]
  - Nausea [Unknown]

NARRATIVE: CASE EVENT DATE: 20210111
